FAERS Safety Report 7141149-2 (Version None)
Quarter: 2010Q4

REPORT INFORMATION
  Report Type: 
  Country: None (occurrence: None)
  Receive Date: 20101122
  Receipt Date: 20101108
  Transmission Date: 20110411
  Serious: Yes (Death, Hospitalization)
  Sender: FDA-Public Use
  Company Number: DSU-2010-06148

PATIENT
  Age: 35 Year
  Sex: Male

DRUGS (6)
  1. OLMETEC HCT (HYDROCHLOROTHIAZIDE, OLMESARTAN MEDOXOMIL) (TABLET) (HYDR [Suspect]
     Indication: HYPERTENSION
     Dates: start: 20050903
  2. LIPITOR [Suspect]
     Indication: DYSLIPIDAEMIA
     Dosage: 10 MG (10 MG, QD), PER ORAL
     Route: 048
     Dates: start: 20050903
  3. LOVASTATIN (LOVASTATIN) (LOVASTATIN) [Concomitant]
  4. FUROSEMIDE [Concomitant]
  5. LOSARTAN (LOSARTAN) (LOSARTAN) [Concomitant]
  6. ACETYLSALICYLIC ACID SRT [Concomitant]

REACTIONS (2)
  - CARDIO-RESPIRATORY ARREST [None]
  - DYSPNOEA [None]
